FAERS Safety Report 25051846 (Version 1)
Quarter: 2025Q1

REPORT INFORMATION
  Report Type: Spontaneous
  Country: US (occurrence: None)
  Receive Date: 20250307
  Receipt Date: 20250307
  Transmission Date: 20250408
  Serious: Yes (Other)
  Sender: FDA-CTU
  Company Number: None

PATIENT
  Age: 62 Year
  Sex: Male
  Weight: 69.2 kg

DRUGS (1)
  1. LIBTAYO [Suspect]
     Active Substance: CEMIPLIMAB-RWLC
     Indication: Squamous cell carcinoma
     Route: 040
     Dates: start: 20250213, end: 20250305

REACTIONS (7)
  - Seizure [None]
  - Eye movement disorder [None]
  - Urinary incontinence [None]
  - Dyspnoea [None]
  - Nasopharyngitis [None]
  - Cold sweat [None]
  - Lethargy [None]

NARRATIVE: CASE EVENT DATE: 20250303
